FAERS Safety Report 8369305-6 (Version None)
Quarter: 2012Q2

REPORT INFORMATION
  Report Type: 
  Country: None (occurrence: None)
  Receive Date: 20120518
  Receipt Date: 20120514
  Transmission Date: 20120825
  Serious: Yes (Other)
  Sender: FDA-Public Use
  Company Number: PHHY2012PT041648

PATIENT
  Age: 41 Year
  Sex: Female

DRUGS (3)
  1. PAMIDRONATE DISODIUM [Suspect]
     Indication: HYPERCALCAEMIA
     Dosage: 90 MG, AS A SINGLE ADMINISTRATION
     Route: 042
  2. PAMIDRONATE DISODIUM [Suspect]
     Indication: HYPERPARATHYROIDISM PRIMARY
  3. CALCITONIN SALMON [Concomitant]
     Dosage: 200 MG, BID
     Route: 048

REACTIONS (2)
  - GESTATIONAL HYPERTENSION [None]
  - MATERNAL EXPOSURE DURING PREGNANCY [None]
